FAERS Safety Report 11435701 (Version 4)
Quarter: 2016Q1

REPORT INFORMATION
  Report Type: Spontaneous
  Country: US (occurrence: US)
  Receive Date: 20150831
  Receipt Date: 20160211
  Transmission Date: 20160525
  Serious: Yes (Death, Other)
  Sender: FDA-Public Use
  Company Number: US-CELGENEUS-USA-2015084347

PATIENT
  Age: 62 Year
  Sex: Female
  Weight: 90.8 kg

DRUGS (23)
  1. PHENERGAN [Concomitant]
     Active Substance: PROMETHAZINE HYDROCHLORIDE
     Indication: NAUSEA
     Route: 065
  2. OXYCODONE AND ACETAMINOPHEN [Concomitant]
     Active Substance: ACETAMINOPHEN\OXYCODONE HYDROCHLORIDE
     Indication: PAIN
     Dosage: 10-325MG
     Route: 065
  3. XYZAL [Concomitant]
     Active Substance: LEVOCETIRIZINE DIHYDROCHLORIDE
     Indication: BRONCHIAL HYPERREACTIVITY
     Route: 065
  4. LANTUS [Concomitant]
     Active Substance: INSULIN GLARGINE
     Indication: DIABETES MELLITUS
     Route: 065
  5. PHENERGAN [Concomitant]
     Active Substance: PROMETHAZINE HYDROCHLORIDE
     Dosage: 20 MILLIGRAM
     Route: 065
  6. REVLIMID [Suspect]
     Active Substance: LENALIDOMIDE
     Indication: DIFFUSE LARGE B-CELL LYMPHOMA
     Dosage: 25 MILLIGRAM
     Route: 048
     Dates: start: 20150522
  7. FLONASE [Concomitant]
     Active Substance: FLUTICASONE PROPIONATE
     Indication: BRONCHIAL HYPERREACTIVITY
     Dosage: 40 MILLIGRAM
     Route: 065
  8. ASPIRIN. [Concomitant]
     Active Substance: ASPIRIN
     Indication: CARDIAC DISORDER
     Dosage: 10 MILLIGRAM
     Route: 065
  9. RITUXAN [Concomitant]
     Active Substance: RITUXIMAB
     Indication: DIFFUSE LARGE B-CELL LYMPHOMA
     Route: 065
     Dates: end: 200510
  10. RITUXAN [Concomitant]
     Active Substance: RITUXIMAB
     Route: 065
     Dates: end: 20131030
  11. RITUXAN [Concomitant]
     Active Substance: RITUXIMAB
     Route: 065
     Dates: start: 201505
  12. VICTOZA [Concomitant]
     Active Substance: LIRAGLUTIDE
     Indication: DIABETES MELLITUS
     Route: 065
  13. ZANAFLEX [Concomitant]
     Active Substance: TIZANIDINE HYDROCHLORIDE
     Indication: PAIN
     Route: 065
  14. SINGULAIR [Concomitant]
     Active Substance: MONTELUKAST SODIUM
     Indication: SEASONAL ALLERGY
     Route: 065
  15. LEXAPRO [Concomitant]
     Active Substance: ESCITALOPRAM OXALATE
     Indication: DEPRESSION
     Route: 065
  16. VISTARIL [Concomitant]
     Active Substance: HYDROXYZINE PAMOATE
     Indication: DEPRESSION
     Route: 065
  17. RITUXAN [Concomitant]
     Active Substance: RITUXIMAB
     Route: 065
     Dates: end: 20150129
  18. CARBOPLATIN. [Concomitant]
     Active Substance: CARBOPLATIN
     Indication: DIFFUSE LARGE B-CELL LYMPHOMA
     Route: 065
     Dates: end: 20150129
  19. VICTOZA [Concomitant]
     Active Substance: LIRAGLUTIDE
     Dosage: 18MG/3ML
     Route: 065
  20. LANTUS [Concomitant]
     Active Substance: INSULIN GLARGINE
     Dosage: 100UNIT/ML
     Route: 065
  21. NEXIUM [Concomitant]
     Active Substance: ESOMEPRAZOLE MAGNESIUM
     Indication: GASTROOESOPHAGEAL REFLUX DISEASE
     Route: 065
  22. NEURONTIN [Concomitant]
     Active Substance: GABAPENTIN
     Indication: NEUROPATHY PERIPHERAL
     Dosage: 4 MILLICURIES
     Route: 065
  23. ZINC [Concomitant]
     Active Substance: ZINC\ZINC CHLORIDE
     Indication: VITAMIN SUPPLEMENTATION
     Dosage: 3 MILLIGRAM
     Route: 065

REACTIONS (4)
  - White blood cell count decreased [Not Recovered/Not Resolved]
  - Cystitis [Not Recovered/Not Resolved]
  - Diffuse large B-cell lymphoma [Fatal]
  - Red blood cell count decreased [Not Recovered/Not Resolved]

NARRATIVE: CASE EVENT DATE: 20150814
